FAERS Safety Report 7396454-1 (Version None)
Quarter: 2011Q2

REPORT INFORMATION
  Report Type: 
  Country: None (occurrence: None)
  Receive Date: 20110406
  Receipt Date: 20101014
  Transmission Date: 20111010
  Serious: Yes (Hospitalization, Other)
  Sender: FDA-Public Use
  Company Number: US-BAYER-200938820NA

PATIENT
  Sex: Female
  Weight: 86.168 kg

DRUGS (4)
  1. YAZ [Suspect]
     Route: 048
  2. YASMIN [Suspect]
     Indication: MENSTRUATION IRREGULAR
     Dosage: UNK
     Route: 048
     Dates: start: 20060101, end: 20070101
  3. PLAQUENIL [Concomitant]
     Indication: SYSTEMIC LUPUS ERYTHEMATOSUS
     Dosage: UNK
     Dates: start: 20040101, end: 20100101
  4. NSAID'S [Concomitant]

REACTIONS (4)
  - THROMBOSIS [None]
  - DEEP VEIN THROMBOSIS [None]
  - CHOLECYSTECTOMY [None]
  - PULMONARY EMBOLISM [None]
